FAERS Safety Report 20668113 (Version 2)
Quarter: 2022Q2

REPORT INFORMATION
  Report Type: Spontaneous
  Country: US (occurrence: US)
  Receive Date: 20220404
  Receipt Date: 20220603
  Transmission Date: 20220721
  Serious: No
  Sender: FDA-Public Use
  Company Number: US-ALXN-A202204129

PATIENT
  Sex: Female

DRUGS (1)
  1. STRENSIQ [Suspect]
     Active Substance: ASFOTASE ALFA
     Indication: Hypophosphatasia
     Dosage: 80 MG/0.8 ML, UNK
     Route: 058
     Dates: start: 20211101

REACTIONS (3)
  - Injection site rash [Recovered/Resolved]
  - Injection site nodule [Recovered/Resolved]
  - Injection site macule [Recovered/Resolved]

NARRATIVE: CASE EVENT DATE: 20211101
